FAERS Safety Report 20567261 (Version 3)
Quarter: 2022Q2

REPORT INFORMATION
  Report Type: Spontaneous
  Country: US (occurrence: US)
  Receive Date: 20220308
  Receipt Date: 20220405
  Transmission Date: 20220720
  Serious: Yes (Other)
  Sender: FDA-Public Use
  Company Number: US-BAYER-2022A034678

PATIENT
  Age: 16 Year
  Sex: Male

DRUGS (2)
  1. KOGENATE FS [Suspect]
     Active Substance: ANTIHEMOPHILIC FACTOR, HUMAN RECOMBINANT
     Dosage: 5095 IU
     Route: 042
  2. KOGENATE FS [Suspect]
     Active Substance: ANTIHEMOPHILIC FACTOR, HUMAN RECOMBINANT
     Dosage: 5 DF, QD, FOR THE LEFT HIP MUSCLE BLEED TREAMENT
     Route: 042

REACTIONS (3)
  - Muscle haemorrhage [Recovered/Resolved]
  - Ingrowing nail [None]
  - Wound infection [None]

NARRATIVE: CASE EVENT DATE: 20220226
